FAERS Safety Report 14277239 (Version 1)
Quarter: 2017Q4

REPORT INFORMATION
  Report Type: Spontaneous
  Country: JP (occurrence: JP)
  Receive Date: 20171211
  Receipt Date: 20171211
  Transmission Date: 20180321
  Serious: Yes (Other)
  Sender: FDA-Public Use
  Company Number: JP-OTSUKA-009967

PATIENT
  Age: 28 Year
  Sex: Male
  Weight: 58 kg

DRUGS (11)
  1. ABILIFY [Suspect]
     Active Substance: ARIPIPRAZOLE
     Indication: SCHIZOPHRENIA
  2. RISPERDAL [Concomitant]
     Active Substance: RISPERIDONE
     Dosage: 3 MG, BID
     Route: 048
     Dates: start: 20100129
  3. RISPERIDONE. [Concomitant]
     Active Substance: RISPERIDONE
     Dosage: DOSAGE FORM=TABLET; ONGOING.
     Dates: start: 20091003
  4. RISPERDAL [Concomitant]
     Active Substance: RISPERIDONE
     Indication: PERSECUTORY DELUSION
     Dosage: 1 MG, BID
     Route: 048
     Dates: start: 20091003, end: 20091019
  5. ZYPREXA [Concomitant]
     Active Substance: OLANZAPINE
     Indication: PERSECUTORY DELUSION
     Dosage: 5 MG, QD
     Route: 048
     Dates: start: 20091003, end: 20091019
  6. ZYPREXA [Concomitant]
     Active Substance: OLANZAPINE
     Dosage: 10 MG, QD
     Route: 048
     Dates: start: 20091020
  7. ABILIFY [Suspect]
     Active Substance: ARIPIPRAZOLE
     Indication: PERSECUTORY DELUSION
     Dosage: 6 MG, BID
     Route: 048
     Dates: start: 20100513, end: 20100517
  8. RISPERDAL [Concomitant]
     Active Substance: RISPERIDONE
     Dosage: 2 MG, BID
     Route: 048
     Dates: start: 20091020, end: 20100128
  9. RIVOTRIL [Concomitant]
     Active Substance: CLONAZEPAM
     Indication: ANXIETY
     Dosage: 0.5 MG, BID
     Route: 048
     Dates: start: 20091003
  10. CLONAZEPAM. [Concomitant]
     Active Substance: CLONAZEPAM
     Dosage: DOSAGE FORM= TABLET; ONGOING.
     Dates: start: 20091003
  11. OLANZAPINE. [Concomitant]
     Active Substance: OLANZAPINE
     Dosage: DOSAGE FORM= TABLET; ONGOING.
     Dates: start: 20091003

REACTIONS (1)
  - Hiccups [Recovered/Resolved]

NARRATIVE: CASE EVENT DATE: 20100516
